FAERS Safety Report 24777446 (Version 1)
Quarter: 2024Q4

REPORT INFORMATION
  Report Type: Spontaneous
  Country: US (occurrence: US)
  Receive Date: 20241226
  Receipt Date: 20241226
  Transmission Date: 20250114
  Serious: Yes (Other)
  Sender: PFIZER
  Company Number: US-PFIZER INC-202400329182

PATIENT
  Age: 77 Year
  Sex: Female
  Weight: 70.8 kg

DRUGS (2)
  1. ALDACTONE [Suspect]
     Active Substance: SPIRONOLACTONE
     Dosage: 12.5 MG, 1X/DAY (TAKE 0.5 TABLETS BY MOUTH 1 (ONE) TIME EACH DAY AT THE SAME TIME)
     Route: 048
  2. LEVOTHYROXINE [Concomitant]
     Active Substance: LEVOTHYROXINE
     Dosage: 88 UG, 1X/DAY (TAKE 1 TABLET BY MOUTH BEFORE BREAKFAST)
     Route: 048

REACTIONS (5)
  - N-terminal prohormone brain natriuretic peptide increased [Unknown]
  - Blood creatinine increased [Unknown]
  - Glomerular filtration rate decreased [Unknown]
  - Blood glucose increased [Unknown]
  - Product prescribing error [Unknown]

NARRATIVE: CASE EVENT DATE: 20241101
